FAERS Safety Report 8719253 (Version 2)
Quarter: 2012Q4

REPORT INFORMATION
  Report Type: 
  Country: IT (occurrence: IT)
  Receive Date: 20120813
  Receipt Date: 20120906
  Transmission Date: 20130627
  Serious: Yes (Hospitalization)
  Sender: FDA-Public Use
  Company Number: IT-BRISTOL-MYERS SQUIBB COMPANY-16835811

PATIENT
  Age: 87 Year
  Sex: Male

DRUGS (5)
  1. COUMADIN [Suspect]
     Indication: CEREBRAL ISCHAEMIA
     Route: 048
     Dates: start: 20060101, end: 20120721
  2. BISOPROLOL HEMIFUMARATE [Concomitant]
     Route: 048
  3. LASIX [Concomitant]
     Dosage: (2doses)tablet
     Route: 048
  4. TRIATEC [Concomitant]
     Indication: HYPERTENSION
     Route: 048
  5. NITRODERM PATCH [Concomitant]

REACTIONS (3)
  - Melaena [Recovering/Resolving]
  - Anaemia [Recovering/Resolving]
  - International normalised ratio increased [None]
